FAERS Safety Report 10278076 (Version 1)
Quarter: 2014Q3

REPORT INFORMATION
  Report Type: Spontaneous
  Country: BR (occurrence: BR)
  Receive Date: 20140704
  Receipt Date: 20140704
  Transmission Date: 20150326
  Serious: Yes (Hospitalization, Other)
  Sender: FDA-Public Use
  Company Number: BR-ROCHE-1428734

PATIENT
  Sex: Male
  Weight: 55 kg

DRUGS (8)
  1. BOCEPREVIR [Suspect]
     Active Substance: BOCEPREVIR
     Indication: HEPATITIS C
     Dosage: 4 TABLETS 3 TIMES A DAY.?ON 27/JUN/2014: DRUG INTERRUPTED
     Route: 048
     Dates: start: 20140520
  2. CILOSTAZOL. [Concomitant]
     Active Substance: CILOSTAZOL
     Indication: DIABETIC NEUROPATHY
     Route: 065
  3. PEGASYS [Suspect]
     Active Substance: PEGINTERFERON ALFA-2A
     Dosage: EVERY FRIDAY?ON 27/JUN/2014: DRUG INTERRUPTED
     Route: 058
     Dates: start: 20140530
  4. RIBAVIRIN. [Suspect]
     Active Substance: RIBAVIRIN
     Dosage: 2 TABLETS IN THE MORNING AND 2 AT NIGHT.?ON 27/JUN/2014: DRUG INTERRUPTED
     Route: 048
     Dates: start: 20140501
  5. PEGASYS [Suspect]
     Active Substance: PEGINTERFERON ALFA-2A
     Indication: HEPATITIS C
     Route: 065
     Dates: start: 2012, end: 2012
  6. RIBAVIRIN. [Suspect]
     Active Substance: RIBAVIRIN
     Indication: HEPATITIS C
     Route: 065
     Dates: start: 2012, end: 2012
  7. THIAMINE [Concomitant]
     Active Substance: THIAMINE
     Indication: DIABETIC NEUROPATHY
     Route: 048
  8. GABAPENTIN. [Concomitant]
     Active Substance: GABAPENTIN
     Indication: DIABETIC NEUROPATHY

REACTIONS (9)
  - Hepatitis C [Not Recovered/Not Resolved]
  - Weight decreased [Recovering/Resolving]
  - Pain in extremity [Unknown]
  - Diabetic neuropathy [Unknown]
  - Renal impairment [Unknown]
  - Localised infection [Recovering/Resolving]
  - Nodule [Unknown]
  - Aortic aneurysm [Unknown]
  - Local swelling [Recovering/Resolving]

NARRATIVE: CASE EVENT DATE: 2012
